FAERS Safety Report 6425932-4 (Version None)
Quarter: 2009Q4

REPORT INFORMATION
  Report Type: 
  Country: None (occurrence: None)
  Receive Date: 20091103
  Receipt Date: 20091103
  Transmission Date: 20100525
  Serious: No
  Sender: FDA-Public Use
  Company Number: None

PATIENT
  Age: 6 Year
  Sex: Female
  Weight: 36.2878 kg

DRUGS (1)
  1. TOPIRAMATE [Suspect]
     Indication: MIGRAINE PROPHYLAXIS
     Dosage: 2 PER DAY, PO
     Route: 048
     Dates: start: 20091020, end: 20091101

REACTIONS (4)
  - DECREASED INTEREST [None]
  - DEPRESSED MOOD [None]
  - EMOTIONAL DISORDER [None]
  - SOCIAL AVOIDANT BEHAVIOUR [None]
